FAERS Safety Report 5662071-4 (Version None)
Quarter: 2008Q1

REPORT INFORMATION
  Report Type: 
  Country: None (occurrence: None)
  Receive Date: 20080212
  Receipt Date: 20071009
  Transmission Date: 20080703
  Serious: No
  Sender: FDA-Public Use
  Company Number: WAES 0710USA02376

PATIENT
  Age: 88 Year
  Sex: Female

DRUGS (2)
  1. ZOLINZA [Suspect]
     Dosage: 100 MG/BID/PO
     Route: 048
     Dates: start: 20070911
  2. ATARAX [Concomitant]

REACTIONS (3)
  - ANOREXIA [None]
  - DEHYDRATION [None]
  - PRURITUS [None]
